FAERS Safety Report 9173762 (Version 1)
Quarter: 2013Q1

REPORT INFORMATION
  Report Type: Spontaneous
  Country: GB (occurrence: None)
  Receive Date: 20130318
  Receipt Date: 20130318
  Transmission Date: 20140127
  Serious: Yes (Other)
  Sender: FDA-Public Use
  Company Number: 2013-04383

PATIENT
  Sex: Female

DRUGS (1)
  1. TRAMADOL HYDROCHLORIDE [Suspect]
     Indication: PAIN
     Dosage: 8 TABLETS IN TOTAL, 1 PER NIGHT, UNKNOWN
     Dates: start: 201211

REACTIONS (9)
  - Depressed mood [None]
  - Influenza like illness [None]
  - Sleep disorder [None]
  - Paraesthesia [None]
  - Rash pruritic [None]
  - Drug ineffective [None]
  - Withdrawal syndrome [None]
  - Pain in extremity [None]
  - Burning sensation [None]
